FAERS Safety Report 6170527-3 (Version None)
Quarter: 2009Q2

REPORT INFORMATION
  Report Type: 
  Country: None (occurrence: None)
  Receive Date: 20090428
  Receipt Date: 20090422
  Transmission Date: 20091009
  Serious: Yes (Hospitalization, Disabling)
  Sender: FDA-Public Use
  Company Number: US-B.I. PHARMACEUTICALS,INC./RIDGEFIELD-2009-BP-03807BP

PATIENT
  Age: 55 Year
  Sex: Male
  Weight: 90.72 kg

DRUGS (1)
  1. FLOMAX [Suspect]
     Dates: start: 20090323, end: 20090331

REACTIONS (5)
  - INJURY [None]
  - INTERVERTEBRAL DISC PROTRUSION [None]
  - MONOPLEGIA [None]
  - PARALYSIS [None]
  - SYNCOPE [None]
